FAERS Safety Report 7206405-8 (Version None)
Quarter: 2011Q1

REPORT INFORMATION
  Report Type: 
  Country: None (occurrence: None)
  Receive Date: 20110103
  Receipt Date: 20110103
  Transmission Date: 20110831
  Serious: Yes (Hospitalization)
  Sender: FDA-Public Use
  Company Number: PHHO2008US07576

PATIENT
  Sex: Male
  Weight: 84.1 kg

DRUGS (4)
  1. PREDNISONE [Concomitant]
  2. AFINITOR [Suspect]
     Indication: CARCINOID TUMOUR
     Dosage: 10 MG, QD
     Dates: start: 20080422, end: 20080609
  3. LEVAQUIN [Concomitant]
  4. SANDOSTATIN LAR [Suspect]
     Indication: CARCINOID SYNDROME
     Dosage: DOUBLE BLIND
     Dates: start: 20080411, end: 20080609

REACTIONS (5)
  - ATELECTASIS [None]
  - DYSPNOEA [None]
  - PNEUMONITIS [None]
  - RESPIRATORY FAILURE [None]
  - LUNG INFILTRATION [None]
